FAERS Safety Report 7521633-X (Version None)
Quarter: 2011Q2

REPORT INFORMATION
  Report Type: 
  Country: None (occurrence: None)
  Receive Date: 20110603
  Receipt Date: 20110527
  Transmission Date: 20111010
  Serious: Yes (Other)
  Sender: FDA-Public Use
  Company Number: US-US-EMD SERONO, INC.-7062030

PATIENT

DRUGS (2)
  1. MITOXANTRONE [Suspect]
     Indication: NEOPLASM
     Route: 042
  2. OSI-461 [Concomitant]
     Indication: NEOPLASM
     Route: 048

REACTIONS (1)
  - NEUTROPENIA [None]
